FAERS Safety Report 14915010 (Version 5)
Quarter: 2018Q4

REPORT INFORMATION
  Report Type: Report from Study
  Country: CA (occurrence: CA)
  Receive Date: 20180518
  Receipt Date: 20181004
  Transmission Date: 20190204
  Serious: Yes (Other)
  Sender: FDA-Public Use
  Company Number: CA-HLSUS-2018-CA-000707

PATIENT
  Age: 61 Year
  Sex: Female

DRUGS (1)
  1. CLOZARIL [Suspect]
     Active Substance: CLOZAPINE
     Dosage: 3 TIMES/DAY, 500MG HS
     Route: 048
     Dates: start: 20100801

REACTIONS (4)
  - Lung infection [Unknown]
  - Urinary tract infection [Unknown]
  - Pneumonia [Unknown]
  - Lung infection [Unknown]

NARRATIVE: CASE EVENT DATE: 201808
